FAERS Safety Report 9018050 (Version 1)
Quarter: 2013Q1

REPORT INFORMATION
  Report Type: Spontaneous
  Country: US (occurrence: None)
  Receive Date: 20130110
  Receipt Date: 20130110
  Transmission Date: 20140127
  Serious: No
  Sender: FDA-Public Use
  Company Number: None

PATIENT
  Age: 53 Year
  Sex: Female

DRUGS (2)
  1. IRBESARTAN AND HYDROCHLOROTHIAZIDE [Suspect]
     Indication: HYPERTENSION
     Dosage: 150 MG/12.5 QD PO
     Route: 048
     Dates: start: 20120511, end: 20120621
  2. IRBESARTAN AND HYDROCHLOROTHIAZIDE [Suspect]
     Indication: OEDEMA PERIPHERAL
     Dosage: 150 MG/12.5 QD PO
     Route: 048
     Dates: start: 20120511, end: 20120621

REACTIONS (3)
  - Abdominal discomfort [None]
  - Frequent bowel movements [None]
  - Product substitution issue [None]
